FAERS Safety Report 17741654 (Version 3)
Quarter: 2022Q1

REPORT INFORMATION
  Report Type: Report from Study
  Country: US (occurrence: US)
  Receive Date: 20200504
  Receipt Date: 20220202
  Transmission Date: 20220423
  Serious: Yes (Other)
  Sender: FDA-Public Use
  Company Number: US-SHIRE-US202015071

PATIENT
  Sex: Female

DRUGS (1)
  1. VELAGLUCERASE ALFA [Suspect]
     Active Substance: VELAGLUCERASE ALFA
     Indication: Gaucher^s disease
     Dosage: UNK UNK, Q2WEEKS
     Route: 042
     Dates: start: 20190516

REACTIONS (3)
  - Diverticulitis [Recovered/Resolved]
  - Weight decreased [Recovered/Resolved]
  - Product dose omission issue [Unknown]
